FAERS Safety Report 22328753 (Version 3)
Quarter: 2025Q3

REPORT INFORMATION
  Report Type: Spontaneous
  Country: US (occurrence: US)
  Receive Date: 20230517
  Receipt Date: 20250703
  Transmission Date: 20251021
  Serious: No
  Sender: RADIUS PHARM
  Company Number: US-RADIUS HEALTH INC.-2023US000831

PATIENT
  Age: 62 Year
  Sex: Female

DRUGS (1)
  1. TYMLOS [Suspect]
     Active Substance: ABALOPARATIDE
     Indication: Osteoporosis postmenopausal
     Route: 058
     Dates: start: 20230125

REACTIONS (5)
  - Nausea [Recovering/Resolving]
  - Renal pain [Recovering/Resolving]
  - Asthenia [Recovering/Resolving]
  - Blood pressure increased [Unknown]
  - Bone pain [Unknown]

NARRATIVE: CASE EVENT DATE: 20230126
